FAERS Safety Report 4532321-6 (Version None)
Quarter: 2004Q4

REPORT INFORMATION
  Report Type: 
  Country: None (occurrence: None)
  Receive Date: 20041217
  Receipt Date: 20041208
  Transmission Date: 20050328
  Serious: Yes (Other)
  Sender: FDA-Public Use
  Company Number: US-2004-029558

PATIENT
  Age: 52 Year
  Sex: Female
  Weight: 70.3 kg

DRUGS (2)
  1. BETASERON [Suspect]
     Indication: MULTIPLE SCLEROSIS
     Dosage: 8 MIU, EVERY 2D, SUBCUTANEOUS
     Route: 058
     Dates: start: 20040601
  2. BACLOFEN [Concomitant]

REACTIONS (3)
  - IMPAIRED HEALING [None]
  - OSTEOMYELITIS [None]
  - POSTOPERATIVE INFECTION [None]
